FAERS Safety Report 9132039 (Version 1)
Quarter: 2013Q1

REPORT INFORMATION
  Report Type: Report from Study
  Country: US (occurrence: US)
  Receive Date: 20130301
  Receipt Date: 20130301
  Transmission Date: 20140127
  Serious: No
  Sender: FDA-Public Use
  Company Number: US-MYLANLABS-2012S1000973

PATIENT
  Sex: Female
  Weight: 72.58 kg

DRUGS (3)
  1. AMNESTEEM CAPSULES [Suspect]
     Indication: ACNE CYSTIC
     Route: 048
     Dates: start: 200911, end: 201001
  2. AMNESTEEM CAPSULES [Suspect]
     Indication: ACNE CYSTIC
     Route: 048
     Dates: start: 200911, end: 201001
  3. ORAL CONTRACEPTIVE NOS [Concomitant]

REACTIONS (2)
  - Arthralgia [Unknown]
  - Myalgia [Unknown]
